FAERS Safety Report 15518002 (Version 5)
Quarter: 2019Q1

REPORT INFORMATION
  Report Type: Spontaneous
  Country: CA (occurrence: CA)
  Receive Date: 20181017
  Receipt Date: 20190124
  Transmission Date: 20190417
  Serious: Yes (Other)
  Sender: FDA-Public Use
  Company Number: CA-PFIZER INC-2018410886

PATIENT
  Age: 25 Year
  Sex: Female

DRUGS (4)
  1. ESCITALOPRAM OXALATE. [Concomitant]
     Active Substance: ESCITALOPRAM OXALATE
     Dosage: 10 MG, DAILY
  2. ESTRADOT [Concomitant]
     Active Substance: ESTRADIOL
     Dosage: 1 DF, 2X/WEEK (1 PATCH)
  3. AMLODIPINE BESILATE [Suspect]
     Active Substance: AMLODIPINE BESYLATE
     Dosage: 10 MG, 1X/DAY
  4. QUETIAPINE FUMARATE. [Concomitant]
     Active Substance: QUETIAPINE FUMARATE
     Dosage: 37.5 MG, DAILY,  (1 AND 1/2 TABLETS AT BEDTIME)

REACTIONS (6)
  - Folliculitis [Unknown]
  - Fungal infection [Recovered/Resolved]
  - Ankylosing spondylitis [Unknown]
  - Skin disorder [Unknown]
  - Skin infection [Unknown]
  - Weight increased [Unknown]

NARRATIVE: CASE EVENT DATE: 20180928
